FAERS Safety Report 4778037-2 (Version None)
Quarter: 2005Q3

REPORT INFORMATION
  Report Type: 
  Country: None (occurrence: None)
  Receive Date: 20050923
  Receipt Date: 20050923
  Transmission Date: 20060218
  Serious: Yes (Other)
  Sender: FDA-Public Use
  Company Number: None

PATIENT
  Age: 55 Year
  Sex: Male
  Weight: 75.8 kg

DRUGS (12)
  1. DOXYCYCLINE [Suspect]
  2. SIMVASTATIN [Concomitant]
  3. MORPHINE [Concomitant]
  4. OXYCODONE AND ACETAMINOPHEN [Concomitant]
  5. CLOTRIMAZOLE [Concomitant]
  6. CITALOPRAM HYDROBROMIDE [Concomitant]
  7. SODIUM FLUORIDE [Concomitant]
  8. DIAZEPAM [Concomitant]
  9. RABEPRAZOLE NA [Concomitant]
  10. BUPROPION HCL [Concomitant]
  11. LORATADINE [Concomitant]
  12. DOCUSATE NA [Concomitant]

REACTIONS (2)
  - NAUSEA [None]
  - VOMITING [None]
